FAERS Safety Report 20975547 (Version 1)
Quarter: 2022Q2

REPORT INFORMATION
  Report Type: Report from Study
  Country: SE (occurrence: SE)
  Receive Date: 20220617
  Receipt Date: 20220617
  Transmission Date: 20220720
  Serious: Yes (Other)
  Sender: FDA-Public Use
  Company Number: SE-SUN PHARMACEUTICAL INDUSTRIES LTD-2022RR-341184

PATIENT

DRUGS (13)
  1. CIPROFLOXACIN [Suspect]
     Active Substance: CIPROFLOXACIN
     Indication: Pulmonary tuberculosis
     Dosage: UNK
     Route: 065
  2. PYRAZINAMIDE [Suspect]
     Active Substance: PYRAZINAMIDE
     Indication: Pulmonary tuberculosis
     Dosage: UNK
     Route: 065
  3. CLARITHROMYCIN [Suspect]
     Active Substance: CLARITHROMYCIN
     Indication: Pulmonary tuberculosis
     Dosage: UNK
     Route: 065
  4. ISONIAZID [Suspect]
     Active Substance: ISONIAZID
     Indication: Pulmonary tuberculosis
     Dosage: UNK
     Route: 065
  5. RIFAMPIN [Suspect]
     Active Substance: RIFAMPIN
     Indication: Pulmonary tuberculosis
     Dosage: UNK
     Route: 065
  6. ETHAMBUTOL [Suspect]
     Active Substance: ETHAMBUTOL HYDROCHLORIDE
     Indication: Pulmonary tuberculosis
     Dosage: UNK
     Route: 065
  7. STREPTOMYCIN [Suspect]
     Active Substance: STREPTOMYCIN SULFATE
     Indication: Pulmonary tuberculosis
     Dosage: UNK
     Route: 065
  8. AMIKACIN [Suspect]
     Active Substance: AMIKACIN
     Indication: Pulmonary tuberculosis
     Dosage: UNK
     Route: 065
  9. CLOFAZIMINE [Suspect]
     Active Substance: CLOFAZIMINE
     Indication: Pulmonary tuberculosis
     Dosage: UNK
     Route: 065
  10. ETHIONAMIDE [Suspect]
     Active Substance: ETHIONAMIDE
     Indication: Pulmonary tuberculosis
     Dosage: UNK
     Route: 065
  11. PROTIONAMIDE [Suspect]
     Active Substance: PROTIONAMIDE
     Indication: Pulmonary tuberculosis
     Dosage: UNK
     Route: 065
  12. RIFABUTIN [Suspect]
     Active Substance: RIFABUTIN
     Indication: Pulmonary tuberculosis
     Dosage: UNK
     Route: 065
  13. CAPREOMYCIN [Suspect]
     Active Substance: CAPREOMYCIN
     Indication: Pulmonary tuberculosis
     Dosage: UNK
     Route: 065

REACTIONS (1)
  - Drug resistance [Unknown]
